FAERS Safety Report 4587158-9 (Version None)
Quarter: 2005Q1

REPORT INFORMATION
  Report Type: 
  Country: None (occurrence: None)
  Receive Date: 20050218
  Receipt Date: 20050207
  Transmission Date: 20050727
  Serious: Yes (Death)
  Sender: FDA-Public Use
  Company Number: US-JNJFOC-20041106581

PATIENT
  Age: 82 Year
  Sex: Male
  Weight: 74.84 kg

DRUGS (12)
  1. SPORANOX [Suspect]
     Dosage: MISSED APPROXIMATELY 3 DAYS UNTIL RECIEVED MEDICATION FROM PAP.
     Route: 049
  2. LEVOFLOXACIN [Concomitant]
     Route: 042
  3. METRONIDAZOLE [Concomitant]
     Route: 049
  4. ALBUTEROL [Concomitant]
     Route: 055
  5. LOVENOX [Concomitant]
  6. GLIPIZIDE [Concomitant]
  7. INSULIN HUMAN [Concomitant]
  8. MEGACE [Concomitant]
     Route: 049
  9. REGLAN [Concomitant]
     Route: 042
  10. PREDNISONE [Concomitant]
     Dosage: TAPERING DOSE
     Route: 049
  11. TAPAZOLE [Concomitant]
     Route: 049
  12. THALIDOMIDE [Concomitant]

REACTIONS (1)
  - PNEUMONIA [None]
